FAERS Safety Report 18146674 (Version 2)
Quarter: 2020Q4

REPORT INFORMATION
  Report Type: Spontaneous
  Country: US (occurrence: US)
  Receive Date: 20200813
  Receipt Date: 20201112
  Transmission Date: 20210113
  Serious: No
  Sender: FDA-Public Use
  Company Number: US-RIGEL PHARMACEUTICALS, INC.-2020FOS000224

PATIENT
  Sex: Female
  Weight: 74.29 kg

DRUGS (2)
  1. TAVALISSE [Suspect]
     Active Substance: FOSTAMATINIB
     Indication: BREAST CANCER FEMALE
     Dosage: 100 MG IN AM, 50 MG IN PM
     Route: 048
     Dates: start: 2020, end: 2020
  2. TAVALISSE [Suspect]
     Active Substance: FOSTAMATINIB
     Dosage: 100 MG, Q12H
     Route: 048
     Dates: start: 2020, end: 2020

REACTIONS (5)
  - Nausea [Unknown]
  - Headache [Unknown]
  - Off label use [Unknown]
  - Wrong technique in product usage process [Unknown]
  - Diarrhoea [Unknown]

NARRATIVE: CASE EVENT DATE: 2020
